FAERS Safety Report 6210311-5 (Version None)
Quarter: 2009Q2

REPORT INFORMATION
  Report Type: 
  Country: None (occurrence: None)
  Receive Date: 20090529
  Receipt Date: 20090529
  Transmission Date: 20091009
  Serious: Yes (Other)
  Sender: FDA-Public Use
  Company Number: None

PATIENT
  Age: 51 Year
  Sex: Female
  Weight: 48.5349 kg

DRUGS (1)
  1. DOXYCYCLINE HYCLATE [Suspect]
     Indication: ROSACEA
     Dosage: 50 MG DAILY BUCCAL
     Route: 002
     Dates: start: 20090424, end: 20090526

REACTIONS (4)
  - ABDOMINAL PAIN [None]
  - FATIGUE [None]
  - INSOMNIA [None]
  - MUSCLE SPASMS [None]
